FAERS Safety Report 6853759-8 (Version None)
Quarter: 2010Q3

REPORT INFORMATION
  Report Type: 
  Country: None (occurrence: None)
  Receive Date: 20100717
  Receipt Date: 20071217
  Transmission Date: 20110219
  Serious: No
  Sender: FDA-Public Use
  Company Number: US-PFIZER INC-2007106660

PATIENT
  Sex: Female
  Weight: 61.2 kg

DRUGS (4)
  1. CHANTIX [Suspect]
     Indication: SMOKING CESSATION THERAPY
     Route: 048
     Dates: start: 20071201
  2. LEXAPRO [Concomitant]
     Route: 048
  3. PROTONIX [Concomitant]
     Route: 048
  4. TRAZODONE HYDROCHLORIDE [Concomitant]
     Route: 048

REACTIONS (1)
  - CONSTIPATION [None]
